FAERS Safety Report 4319372-1 (Version None)
Quarter: 2004Q1

REPORT INFORMATION
  Report Type: 
  Country: None (occurrence: None)
  Receive Date: 20040316
  Receipt Date: 20040303
  Transmission Date: 20041129
  Serious: Yes (Hospitalization)
  Sender: FDA-Public Use
  Company Number: 04P-062-0252317-00

PATIENT
  Age: 50 Year
  Sex: Female
  Weight: 64 kg

DRUGS (7)
  1. ISOPTIN [Suspect]
     Indication: HYPERTENSION
     Dosage: 80 MG, 3 IN 1 D, PER ORAL
     Route: 048
     Dates: end: 20030705
  2. PHENPROCOUMON (PHENPROCOUMON) [Suspect]
     Indication: AORTIC VALVE REPLACEMENT
     Dosage: 1.5 MG, 1 IN 1 D, PER ORAL
     Route: 048
     Dates: start: 20010101, end: 20030705
  3. INDOMETHACIN [Suspect]
     Indication: PAIN
     Dosage: 50 MG, AS REQUIRED, PER ORAL
     Route: 048
     Dates: end: 20030705
  4. ENALAPRIL MALEATE [Suspect]
     Indication: HYPERTENSION
     Dosage: 2.5 MG, 2 IN 1 D, PER ORAL
     Route: 048
     Dates: end: 20030705
  5. METOPROLOL SUCCINATE [Concomitant]
  6. DUOVENT [Concomitant]
  7. DIGITOXIN INJ [Concomitant]

REACTIONS (18)
  - ABDOMINAL PAIN [None]
  - ASTHENIA [None]
  - BLOOD PRESSURE DECREASED [None]
  - DEHYDRATION [None]
  - DIALYSIS [None]
  - DRUG INTERACTION [None]
  - DUODENITIS [None]
  - GASTRITIS [None]
  - GASTROINTESTINAL HAEMORRHAGE [None]
  - HAEMORRHAGE [None]
  - OEDEMA PERIPHERAL [None]
  - OVERDOSE [None]
  - PAIN IN EXTREMITY [None]
  - PARAESTHESIA [None]
  - POLYNEUROPATHY [None]
  - PYREXIA [None]
  - RENAL IMPAIRMENT [None]
  - SOMNOLENCE [None]
